FAERS Safety Report 25972472 (Version 1)
Quarter: 2025Q4

REPORT INFORMATION
  Report Type: Spontaneous
  Country: JP (occurrence: JP)
  Receive Date: 20251029
  Receipt Date: 20251029
  Transmission Date: 20260118
  Serious: Yes (Other)
  Sender: MERCK SHARP & DOHME LLC
  Company Number: JP-009507513-2344232

PATIENT
  Age: 9 Decade

DRUGS (3)
  1. KEYTRUDA [Suspect]
     Active Substance: PEMBROLIZUMAB
     Indication: Renal cell carcinoma stage IV
     Route: 042
  2. LENVIMA [Suspect]
     Active Substance: LENVATINIB
     Indication: Renal cell carcinoma stage IV
     Dosage: 8 MG ONCE A DAY
     Route: 048
  3. LENVIMA [Suspect]
     Active Substance: LENVATINIB
     Indication: Renal cell carcinoma stage IV
     Route: 048

REACTIONS (2)
  - Renal impairment [Unknown]
  - Proteinuria [Unknown]

NARRATIVE: CASE EVENT DATE: 20251001
